FAERS Safety Report 6554162-0 (Version None)
Quarter: 2010Q1

REPORT INFORMATION
  Report Type: 
  Country: None (occurrence: None)
  Receive Date: 20100122
  Receipt Date: 20100119
  Transmission Date: 20100710
  Serious: Yes (Other)
  Sender: FDA-Public Use
  Company Number: 1000011098

PATIENT
  Age: 43 Year
  Sex: Female

DRUGS (4)
  1. THYROID TAB [Suspect]
     Indication: HYPOTHYROIDISM
     Dosage: 60 MG (60 MG, 1 IN 1 D), ORAL
     Route: 048
     Dates: start: 20070101, end: 20091230
  2. VITAMIN D [Concomitant]
  3. MULTI-VITAMIN [Concomitant]
  4. ZYRTEC [Concomitant]

REACTIONS (6)
  - ALOPECIA [None]
  - DRY SKIN [None]
  - FATIGUE [None]
  - FEELING COLD [None]
  - VENTRICULAR EXTRASYSTOLES [None]
  - WEIGHT INCREASED [None]
